FAERS Safety Report 26035481 (Version 1)
Quarter: 2025Q4

REPORT INFORMATION
  Report Type: Spontaneous
  Country: GB (occurrence: GB)
  Receive Date: 20251112
  Receipt Date: 20251112
  Transmission Date: 20260118
  Serious: Yes (Hospitalization)
  Sender: MYLAN
  Company Number: GB-MYLANLABS-2025M1096086

PATIENT
  Age: 74 Year
  Sex: Male

DRUGS (2)
  1. PREGABALIN [Suspect]
     Active Substance: PREGABALIN
     Indication: Frontotemporal dementia
     Dosage: UNK
  2. RIVASTIGMINE [Suspect]
     Active Substance: RIVASTIGMINE
     Indication: Frontotemporal dementia
     Dosage: UNK

REACTIONS (3)
  - Drug ineffective [Unknown]
  - Hyperhidrosis [Unknown]
  - Salivary hypersecretion [Unknown]
